FAERS Safety Report 7324543-6 (Version None)
Quarter: 2011Q1

REPORT INFORMATION
  Report Type: 
  Country: None (occurrence: None)
  Receive Date: 20110301
  Receipt Date: 20110216
  Transmission Date: 20110831
  Serious: Yes (Hospitalization)
  Sender: FDA-Public Use
  Company Number: PHHY2010US48613

PATIENT
  Sex: Female
  Weight: 68.027 kg

DRUGS (2)
  1. GLEEVEC [Suspect]
     Indication: NEOPLASM MALIGNANT
     Dosage: 400 MG, DAILY
     Route: 048
     Dates: start: 20100419
  2. KYTRIL [Concomitant]
     Indication: NAUSEA
     Dosage: 6 MG, DAILY
     Dates: start: 20100901

REACTIONS (7)
  - BONE PAIN [None]
  - VOMITING [None]
  - HYPOKALAEMIA [None]
  - NAUSEA [None]
  - GASTROENTERITIS VIRAL [None]
  - INFLUENZA LIKE ILLNESS [None]
  - MYALGIA [None]
